FAERS Safety Report 6407081-4 (Version None)
Quarter: 2009Q4

REPORT INFORMATION
  Report Type: 
  Country: None (occurrence: None)
  Receive Date: 20091015
  Receipt Date: 20091002
  Transmission Date: 20100525
  Serious: Yes (Hospitalization)
  Sender: FDA-Public Use
  Company Number: CAP09000201

PATIENT
  Age: 67 Year
  Sex: Female

DRUGS (4)
  1. ACTONEL [Suspect]
     Indication: OSTEOPOROSIS
     Dosage: 35 MG ONCE WEEKLY, ORAL
     Route: 048
     Dates: start: 20080501, end: 20090101
  2. ACTONEL [Suspect]
     Indication: OSTEOPOROSIS
     Dosage: 5 MG DAILY, ORAL
     Route: 048
     Dates: start: 20040101, end: 20080501
  3. LOPRESS (PRAZOSIN HYDROCHLORIDE) [Concomitant]
  4. LOPRESSOR [Concomitant]

REACTIONS (5)
  - BONE DENSITY DECREASED [None]
  - CHEST PAIN [None]
  - CONDITION AGGRAVATED [None]
  - GASTROOESOPHAGEAL REFLUX DISEASE [None]
  - OESOPHAGEAL DISORDER [None]
